FAERS Safety Report 4700649-2 (Version None)
Quarter: 2005Q2

REPORT INFORMATION
  Report Type: 
  Country: None (occurrence: None)
  Receive Date: 20050627
  Receipt Date: 20050623
  Transmission Date: 20051028
  Serious: Yes (Hospitalization)
  Sender: FDA-Public Use
  Company Number: DE-MERCK-0506DEU00195

PATIENT
  Age: 72 Year
  Sex: Male

DRUGS (1)
  1. COZAAR [Suspect]
     Indication: HYPERTENSION
     Route: 048
     Dates: end: 20050101

REACTIONS (4)
  - DERMATITIS ALLERGIC [None]
  - HAEMOLYTIC ANAEMIA [None]
  - LUNG DISORDER [None]
  - PRURITUS [None]
